FAERS Safety Report 14539726 (Version 1)
Quarter: 2018Q1

REPORT INFORMATION
  Report Type: Spontaneous
  Country: US (occurrence: US)
  Receive Date: 20180215
  Receipt Date: 20180215
  Transmission Date: 20180509
  Serious: No
  Sender: FDA-Public Use
  Company Number: None

PATIENT
  Sex: Female
  Weight: 67.5 kg

DRUGS (1)
  1. ROBITUSSIN DM MAX COUGH CONGESTION [Suspect]
     Active Substance: DEXTROMETHORPHAN HYDROBROMIDE\GUAIFENESIN
     Indication: COUGH
     Dosage: ?          QUANTITY:20 ML;?
     Route: 048

REACTIONS (3)
  - Dyspnoea [None]
  - Heart rate increased [None]
  - Confusional state [None]

NARRATIVE: CASE EVENT DATE: 20180214
